FAERS Safety Report 5747709-5 (Version None)
Quarter: 2008Q2

REPORT INFORMATION
  Report Type: 
  Country: None (occurrence: None)
  Receive Date: 20080523
  Receipt Date: 20080512
  Transmission Date: 20081010
  Serious: Yes (Hospitalization, Disabling)
  Sender: FDA-Public Use
  Company Number: CA-ROCHE-523790

PATIENT
  Sex: Male
  Weight: 107 kg

DRUGS (17)
  1. PEGASYS [Suspect]
     Route: 058
     Dates: start: 20070203
  2. PEGASYS [Suspect]
     Route: 058
     Dates: start: 20070417
  3. PEGASYS [Suspect]
     Route: 058
     Dates: end: 20070601
  4. PEGASYS [Suspect]
     Route: 058
     Dates: end: 20071015
  5. PEGASYS [Suspect]
     Route: 058
     Dates: end: 20071109
  6. RIBAVIRIN [Suspect]
     Dosage: GIVEN AS SIX TABS TWICE DAILY.
     Route: 048
     Dates: start: 20070203, end: 20070218
  7. RIBAVIRIN [Suspect]
     Dosage: DOSE DECREASED TO TWO TABS TWICE DAILY.
     Route: 048
     Dates: start: 20070219
  8. RIBAVIRIN [Suspect]
     Dosage: GIVEN AS THREE TABLETS TWICE DAILY.
     Route: 048
     Dates: end: 20070601
  9. RIBAVIRIN [Suspect]
     Dosage: GIVEN AS THREE TABLETS TWICE DAILY.
     Route: 048
     Dates: end: 20071015
  10. RIBAVIRIN [Suspect]
     Route: 048
     Dates: end: 20071109
  11. ATACAND [Concomitant]
     Dates: start: 19970101
  12. HYDROCHLOROTHIAZIDE [Concomitant]
     Dates: start: 19970101
  13. GLYBURIDE [Concomitant]
     Dates: start: 19970101
  14. METFORMIN HCL [Concomitant]
     Dates: start: 19970101
  15. CLONAZEPAM [Concomitant]
     Dates: start: 20000101
  16. TERAZOSIN HCL [Concomitant]
     Dates: start: 19980101
  17. SPIRONOLACTONE [Concomitant]

REACTIONS (1)
  - HEPATIC ENCEPHALOPATHY [None]
